FAERS Safety Report 16489397 (Version 3)
Quarter: 2019Q3

REPORT INFORMATION
  Report Type: Spontaneous
  Country: US (occurrence: US)
  Receive Date: 20190628
  Receipt Date: 20190711
  Transmission Date: 20191004
  Serious: No
  Sender: FDA-Public Use
  Company Number: US-PFIZER INC-2019275766

PATIENT
  Age: 51 Year
  Sex: Female

DRUGS (3)
  1. CAPECITABINE. [Suspect]
     Active Substance: CAPECITABINE
     Dosage: UNK
  2. IBRANCE [Suspect]
     Active Substance: PALBOCICLIB
     Dosage: 75 MG, CYCLIC (EVERY OTHER DAY FOR 21 DAYS REPEAT EVERY 28 DAYS)
     Route: 048
     Dates: start: 2019
  3. IBRANCE [Suspect]
     Active Substance: PALBOCICLIB
     Indication: BREAST CANCER FEMALE
     Dosage: 75 MG, CYCLIC (DAILY FOR 21 DAYS REPEAT EVERY 28 DAYS)
     Route: 048
     Dates: start: 201905, end: 2019

REACTIONS (10)
  - Pain [Unknown]
  - Neoplasm progression [Unknown]
  - Hypotension [Unknown]
  - Decreased appetite [Unknown]
  - Night sweats [Unknown]
  - Tongue disorder [Unknown]
  - Weight decreased [Unknown]
  - Axillary pain [Unknown]
  - Irritability [Unknown]
  - Pruritus [Unknown]

NARRATIVE: CASE EVENT DATE: 2019
